FAERS Safety Report 17949518 (Version 1)
Quarter: 2020Q2

REPORT INFORMATION
  Report Type: Spontaneous
  Country: US (occurrence: US)
  Receive Date: 20200626
  Receipt Date: 20200626
  Transmission Date: 20200714
  Serious: No
  Sender: FDA-Public Use
  Company Number: US-ASTRAZENECA-2020SE77403

PATIENT
  Sex: Male
  Weight: 119.7 kg

DRUGS (6)
  1. BYDUREON [Suspect]
     Active Substance: EXENATIDE
     Indication: TYPE 2 DIABETES MELLITUS
     Route: 058
  2. ATORVASTATIN [Concomitant]
     Active Substance: ATORVASTATIN
  3. METFORMIN ER [Concomitant]
     Active Substance: METFORMIN HYDROCHLORIDE
     Route: 048
  4. LISINOPRIL. [Suspect]
     Active Substance: LISINOPRIL
     Indication: PROPHYLAXIS
     Route: 048
  5. BYDUREON BCISE [Suspect]
     Active Substance: EXENATIDE
     Indication: TYPE 2 DIABETES MELLITUS
     Route: 058
  6. JARDIANCE [Concomitant]
     Active Substance: EMPAGLIFLOZIN

REACTIONS (6)
  - Glycosylated haemoglobin increased [Recovering/Resolving]
  - Injection site pain [Recovering/Resolving]
  - Blood glucose abnormal [Recovering/Resolving]
  - Nodule [Unknown]
  - Muscle spasms [Recovering/Resolving]
  - Diarrhoea [Not Recovered/Not Resolved]
